FAERS Safety Report 23387844 (Version 2)
Quarter: 2024Q1

REPORT INFORMATION
  Report Type: Spontaneous
  Country: US (occurrence: US)
  Receive Date: 20240110
  Receipt Date: 20240123
  Transmission Date: 20240409
  Serious: Yes (Hospitalization, Other)
  Sender: FDA-Public Use
  Company Number: US-BAXTER-2024BAX010144

PATIENT
  Age: 58 Year
  Sex: Male
  Weight: 139 kg

DRUGS (6)
  1. CYCLOPHOSPHAMIDE [Suspect]
     Active Substance: CYCLOPHOSPHAMIDE
     Indication: Acute lymphocytic leukaemia
     Dosage: 300 MG/M2 CYCLIC (CYCLE: 1, 3; SCHEDULE: EVERY 12 HRS X 6 DOSES, DAYS 1-3.)
     Route: 042
     Dates: start: 20231126
  2. RITUXIMAB [Suspect]
     Active Substance: RITUXIMAB
     Indication: Acute lymphocytic leukaemia
     Dosage: 375 MG/M2 CYCLIC (CYCLE: 1-4, SCHEDULE: DAY 2, DAY 8. MOAB C2B8 ANTI CD20, CHIMERIC)
     Route: 042
     Dates: start: 20231124
  3. VINCRISTINE SULFATE [Suspect]
     Active Substance: VINCRISTINE SULFATE
     Indication: Acute lymphocytic leukaemia
     Dosage: 2 MG CYCLIC (CYCLE: 1, 3; SCHEDULE: DAY 1, DAY 8)
     Route: 042
     Dates: start: 20231123
  4. METHOTREXATE SODIUM [Suspect]
     Active Substance: METHOTREXATE SODIUM
     Indication: Acute lymphocytic leukaemia
     Dosage: 750 MG/M2 CYCLIC (CYCLE: 2, 4; SCHEDULE: DAY 1)
     Route: 042
     Dates: start: 20231122
  5. CYTARABINE [Suspect]
     Active Substance: CYTARABINE
     Indication: Acute lymphocytic leukaemia
     Dosage: 200 MG/M2 CYCLIC (2 G/M2/DOSE, CYCLE: 2, 4, SCHEDULE: EVERY 12 HRS X 4, DAYS 2, 3)
     Route: 042
     Dates: start: 20231128
  6. DEXAMETHASONE [Suspect]
     Active Substance: DEXAMETHASONE
     Indication: Acute lymphocytic leukaemia
     Dosage: 40 MG CYCLIC (CYCLE: 1, 3; SCHEDULE: DAYS 1-4, DAYS 11-14.)
     Route: 042
     Dates: start: 20231122

REACTIONS (8)
  - Febrile neutropenia [Recovering/Resolving]
  - Feeling hot [Unknown]
  - Pyrexia [Unknown]
  - Chills [Unknown]
  - Dyspnoea [Unknown]
  - Cough [Unknown]
  - Headache [Unknown]
  - Chest pain [Unknown]

NARRATIVE: CASE EVENT DATE: 20231207
